FAERS Safety Report 22015006 (Version 3)
Quarter: 2023Q2

REPORT INFORMATION
  Report Type: Spontaneous
  Country: US (occurrence: US)
  Receive Date: 20230221
  Receipt Date: 20230410
  Transmission Date: 20230721
  Serious: No
  Sender: FDA-Public Use
  Company Number: US-SANOFI-01494095

PATIENT
  Age: 49 Year
  Sex: Female
  Weight: 117.93 kg

DRUGS (1)
  1. DUPIXENT [Suspect]
     Active Substance: DUPILUMAB
     Indication: Dermatitis atopic
     Dosage: 300 MG, QOW
     Route: 058
     Dates: start: 20220921, end: 20230308

REACTIONS (2)
  - Rash [Unknown]
  - Therapeutic response decreased [Unknown]
